FAERS Safety Report 23077965 (Version 1)
Quarter: 2023Q4

REPORT INFORMATION
  Report Type: Spontaneous
  Country: US (occurrence: US)
  Receive Date: 20231018
  Receipt Date: 20231018
  Transmission Date: 20240110
  Serious: Yes (Other)
  Sender: FDA-Public Use
  Company Number: US-drreddys-LIT/USA/23/0179790

PATIENT
  Age: 71 Year
  Sex: Male

DRUGS (3)
  1. DILTIAZEM HYDROCHLORIDE [Interacting]
     Active Substance: DILTIAZEM HYDROCHLORIDE
     Indication: Atrial fibrillation
     Route: 042
  2. DILTIAZEM [Interacting]
     Active Substance: DILTIAZEM
     Indication: Atrial fibrillation
     Dosage: AS A MAINTENANCE DOSE
     Route: 048
  3. METHADONE [Interacting]
     Active Substance: METHADONE HYDROCHLORIDE
     Indication: Drug use disorder

REACTIONS (2)
  - Ileus paralytic [Recovering/Resolving]
  - Drug interaction [Unknown]
